FAERS Safety Report 9786537 (Version 3)
Quarter: 2014Q1

REPORT INFORMATION
  Report Type: Spontaneous
  Country: US (occurrence: US)
  Receive Date: 20131227
  Receipt Date: 20140221
  Transmission Date: 20141002
  Serious: Yes (Death, Hospitalization)
  Sender: FDA-Public Use
  Company Number: US-CELGENEUS-163-21880-13123055

PATIENT
  Age: 60 Year
  Sex: Male
  Weight: 108.2 kg

DRUGS (20)
  1. REVLIMID [Suspect]
     Indication: PLASMA CELL MYELOMA
     Dosage: 25 MILLIGRAM
     Route: 048
     Dates: start: 20131126, end: 20131212
  2. MLN9708/PLACEBO [Suspect]
     Indication: PLASMA CELL MYELOMA
     Dosage: 4 MILLIGRAM
     Route: 048
     Dates: start: 20131126, end: 20131211
  3. DEXAMETHASONE [Suspect]
     Indication: PLASMA CELL MYELOMA
     Route: 048
     Dates: start: 20131126, end: 20131211
  4. O2 [Concomitant]
     Indication: SUPPLEMENTATION THERAPY
     Route: 065
  5. ACYCLOVIR [Concomitant]
     Indication: PRODUCT USED FOR UNKNOWN INDICATION
     Dosage: 800 MILLIGRAM
     Route: 048
  6. ASPIRIN [Concomitant]
     Indication: ATRIAL FIBRILLATION
     Dosage: 325 MILLIGRAM
     Route: 048
  7. CALCIUM CARBONATE-VITAMIN D3 [Concomitant]
     Indication: PRODUCT USED FOR UNKNOWN INDICATION
     Dosage: 500MG(1,250MG)-200 UNIT
     Route: 048
  8. DIGOXIN [Concomitant]
     Indication: HYPERTENSION
     Dosage: 125 MICROGRAM
     Route: 048
  9. DIGOXIN [Concomitant]
     Indication: ATRIAL FIBRILLATION
  10. FLUDROCORTISONE [Concomitant]
     Indication: PRODUCT USED FOR UNKNOWN INDICATION
     Dosage: .2 MILLIGRAM
     Route: 048
  11. LEVOFLOXACIN [Concomitant]
     Indication: PRODUCT USED FOR UNKNOWN INDICATION
     Dosage: 500 MILLIGRAM
     Route: 048
  12. LORAZEPAM [Concomitant]
     Indication: ANXIETY
     Dosage: 1 MILLIGRAM
     Route: 048
  13. METOPROLOL SUCCINATE [Concomitant]
     Indication: HYPERTENSION
     Dosage: 50 MILLIGRAM
     Route: 048
  14. METOPROLOL SUCCINATE [Concomitant]
     Indication: ATRIAL FIBRILLATION
  15. ONDANSETRON [Concomitant]
     Indication: NAUSEA
     Dosage: 24 MILLIGRAM
     Route: 048
  16. ONDANSETRON [Concomitant]
     Indication: VOMITING
  17. POTASSIUM CHLORIDE [Concomitant]
     Indication: PRODUCT USED FOR UNKNOWN INDICATION
     Dosage: 20 MILLIEQUIVALENTS
     Route: 048
  18. SPIRONOLACTONE [Concomitant]
     Indication: HYPERTENSION
     Dosage: 12.5 MILLIGRAM
     Route: 048
  19. NEUPOGEN [Concomitant]
     Indication: NEUTROPENIA
     Route: 065
     Dates: start: 201312
  20. ALBUMIN [Concomitant]
     Indication: PRODUCT USED FOR UNKNOWN INDICATION
     Route: 065
     Dates: start: 201312

REACTIONS (3)
  - Cardiac arrest [Fatal]
  - Cardiac failure congestive [Fatal]
  - Diastolic dysfunction [Fatal]
